FAERS Safety Report 8337007-8 (Version None)
Quarter: 2012Q2

REPORT INFORMATION
  Report Type: 
  Country: None (occurrence: None)
  Receive Date: 20120504
  Receipt Date: 20120430
  Transmission Date: 20120825
  Serious: Yes (Hospitalization, Other)
  Sender: FDA-Public Use
  Company Number: US-PFIZER INC-2011161067

PATIENT
  Sex: Female
  Weight: 122.45 kg

DRUGS (6)
  1. DILANTIN [Suspect]
     Dosage: 300MG IN MORNING AND 200MG AT NIGHT, 2X/DAY
  2. TOPAMAX [Suspect]
     Indication: EPILEPSY
     Dosage: UNK
  3. DILANTIN [Suspect]
     Indication: EPILEPSY
     Dosage: 100 MG, UNK
     Route: 048
     Dates: start: 19750101
  4. DILANTIN [Suspect]
     Dosage: 150 MG, UNK
     Route: 048
  5. DILANTIN [Suspect]
     Dosage: 250 MG IN THE MORNING, 300 MG AT NIGHT
  6. MYSOLINE [Suspect]
     Indication: EPILEPSY
     Dosage: 500MG IN MORNING AND 250 AT NIGHT, 2X/DAY

REACTIONS (12)
  - ARTHROPATHY [None]
  - MACULAR DEGENERATION [None]
  - TYPE 2 DIABETES MELLITUS [None]
  - FEMUR FRACTURE [None]
  - ARTHRITIS [None]
  - ABDOMINAL PAIN UPPER [None]
  - NEUROPATHY PERIPHERAL [None]
  - OSTEOPOROSIS [None]
  - SPINAL DEFORMITY [None]
  - PERIPHERAL SENSORY NEUROPATHY [None]
  - FALL [None]
  - PAIN [None]
